FAERS Safety Report 5232899-3 (Version None)
Quarter: 2007Q1

REPORT INFORMATION
  Report Type: 
  Country: None (occurrence: None)
  Receive Date: 20070207
  Receipt Date: 20070123
  Transmission Date: 20070707
  Serious: Yes (Other)
  Sender: FDA-Public Use
  Company Number: US-PFIZER INC-2007007125

PATIENT
  Sex: Female
  Weight: 68 kg

DRUGS (5)
  1. CHANTIX [Suspect]
     Indication: SMOKING CESSATION THERAPY
     Route: 048
     Dates: start: 20070122, end: 20070122
  2. BENADRYL [Suspect]
     Indication: WHEEZING
  3. FLEXERIL [Concomitant]
  4. PAXIL [Concomitant]
  5. ALBUTEROL [Concomitant]

REACTIONS (3)
  - CHEST DISCOMFORT [None]
  - DRUG INEFFECTIVE [None]
  - WHEEZING [None]
